FAERS Safety Report 7792277-X (Version None)
Quarter: 2011Q4

REPORT INFORMATION
  Report Type: 
  Country: None (occurrence: None)
  Receive Date: 20111003
  Receipt Date: 20110923
  Transmission Date: 20120403
  Serious: Yes (Other)
  Sender: FDA-Public Use
  Company Number: CA-UCBSA-041251

PATIENT
  Sex: Male

DRUGS (1)
  1. CERTOLIZUMAB PEGOL [Suspect]
     Indication: CROHN'S DISEASE
     Dosage: 400MG Q2W (AT WEEK 0,2 AND 4) CURRENTLY AT 400 MG Q4W'; NO OD DOSES RECEIVED:29
     Route: 058
     Dates: start: 20110624

REACTIONS (1)
  - RESPIRATORY TRACT INFECTION VIRAL [None]
